FAERS Safety Report 4276701-5 (Version None)
Quarter: 2004Q1

REPORT INFORMATION
  Report Type: 
  Country: None (occurrence: None)
  Receive Date: 20040120
  Receipt Date: 20040108
  Transmission Date: 20041129
  Serious: Yes (Hospitalization)
  Sender: FDA-Public Use
  Company Number: BLND00203003137

PATIENT
  Age: 85 Year
  Sex: Male

DRUGS (10)
  1. ACEON [Suspect]
     Indication: CARDIAC FAILURE CONGESTIVE
     Dosage: 2 MG BID PO
     Route: 048
     Dates: start: 20010124
  2. ACETYLSALICYLIC ACID SRT [Concomitant]
  3. DIGOXIN [Concomitant]
  4. LOSEC [Concomitant]
  5. FRUSEMIDE [Concomitant]
  6. SENNA [Concomitant]
  7. FLOMAX [Concomitant]
  8. PRAVASTATIN [Concomitant]
  9. WARFARIN SODIUM [Concomitant]
  10. TAMSULOSIN [Concomitant]

REACTIONS (5)
  - BACK PAIN [None]
  - FALL [None]
  - GANGRENE [None]
  - HAEMATURIA [None]
  - PERIPHERAL ISCHAEMIA [None]
